FAERS Safety Report 23984827 (Version 1)
Quarter: 2024Q2

REPORT INFORMATION
  Report Type: Report from Study
  Country: US (occurrence: None)
  Receive Date: 20240618
  Receipt Date: 20240618
  Transmission Date: 20240716
  Serious: Yes (Life-Threatening)
  Sender: FDA-Public Use
  Company Number: 2024A138050

PATIENT
  Sex: Female

DRUGS (1)
  1. LYNPARZA [Suspect]
     Active Substance: OLAPARIB
     Route: 048
     Dates: end: 202308

REACTIONS (11)
  - Loss of consciousness [Unknown]
  - Confusional state [Unknown]
  - Nausea [Unknown]
  - Cerebral disorder [Unknown]
  - Hypertension [Unknown]
  - Anxiety [Unknown]
  - Stress [Unknown]
  - Headache [Unknown]
  - Hypoaesthesia [Unknown]
  - Fall [Unknown]
  - Malaise [Unknown]
